FAERS Safety Report 4597821-1 (Version None)
Quarter: 2005Q1

REPORT INFORMATION
  Report Type: 
  Country: None (occurrence: None)
  Receive Date: 20050303
  Receipt Date: 20041130
  Transmission Date: 20050727
  Serious: Yes (Death, Life-Threatening, Hospitalization)
  Sender: FDA-Public Use
  Company Number: DE-MERCK-0502DEU00161

PATIENT
  Age: 67 Year
  Sex: Male
  Weight: 92 kg

DRUGS (8)
  1. PRIMAXIN [Suspect]
     Indication: FEBRILE NEUTROPENIA
     Route: 042
     Dates: start: 20040512, end: 20040514
  2. PRIMAXIN [Suspect]
     Indication: INFECTION
     Route: 042
     Dates: start: 20040512, end: 20040514
  3. THALIDOMIDE [Concomitant]
     Indication: MYELODYSPLASTIC SYNDROME
     Route: 065
     Dates: start: 20040503, end: 20040514
  4. ITRACONAZOLE [Concomitant]
     Indication: PNEUMONIA ASPERGILLUS
     Route: 065
     Dates: start: 20040507, end: 20040517
  5. CASPOFUNGIN ACETATE [Concomitant]
     Indication: PNEUMONIA ASPERGILLUS
     Route: 042
     Dates: start: 20040511, end: 20040517
  6. TEICOPLANIN [Concomitant]
     Indication: FEBRILE NEUTROPENIA
     Route: 065
     Dates: start: 20040512, end: 20040517
  7. TEICOPLANIN [Concomitant]
     Indication: INFECTION
     Route: 065
     Dates: start: 20040512, end: 20040517
  8. METRONIDAZOLE [Concomitant]
     Route: 065
     Dates: start: 20040509, end: 20040514

REACTIONS (2)
  - CEREBRAL HAEMORRHAGE [None]
  - CONVULSION [None]
